FAERS Safety Report 24937452 (Version 3)
Quarter: 2025Q3

REPORT INFORMATION
  Report Type: Spontaneous
  Country: JP (occurrence: JP)
  Receive Date: 20250206
  Receipt Date: 20250908
  Transmission Date: 20251020
  Serious: Yes (Death, Hospitalization, Other)
  Sender: BRISTOL-MYERS SQUIBB COMPANY
  Company Number: JP-BRISTOL-MYERS SQUIBB COMPANY-2025-016144

PATIENT
  Age: 77 Year
  Sex: Male
  Weight: 64.5 kg

DRUGS (14)
  1. ABRAXANE [Suspect]
     Active Substance: PACLITAXEL
     Indication: Lung cancer metastatic
     Dosage: ON DAYS 1 AND 8 OF EACH 21-DAY CYCLE, CYCLES 1-3, DAILY DOSE: 170 MILLIGRAM(S)?DAILY DOSE: 170 MILLIGRAM(S)
     Dates: start: 20231018, end: 20240529
  2. ABRAXANE [Suspect]
     Active Substance: PACLITAXEL
     Dosage: ON DAYS 1 AND 8 OF EACH 21-DAY CYCLE, CYCLE 4?DAILY DOSE: 136 MILLIGRAM(S)
     Dates: start: 20240123
  3. ABRAXANE [Suspect]
     Active Substance: PACLITAXEL
     Dosage: ON DAYS 1 AND 8 OF EACH 21-DAY CYCLE, CYCLE 5?DAILY DOSE: 137.6 MILLIGRAM(S)
     Dates: start: 20240213
  4. ABRAXANE [Suspect]
     Active Substance: PACLITAXEL
     Dosage: ON DAYS 1 AND 8 OF EACH 21-DAY CYCLE, CYCLES 6-7?DAILY DOSE: 136 MILLIGRAM(S)
     Dates: start: 20240312
  5. ABRAXANE [Suspect]
     Active Substance: PACLITAXEL
     Dosage: ON DAYS 1 AND 8 OF EACH 21-DAY CYCLE, CYCLE 8?DAILY DOSE: 135.2 MILLIGRAM(S)
     Dates: start: 20240508
  6. ABRAXANE [Suspect]
     Active Substance: PACLITAXEL
     Dosage: CYCLE 9
     Dates: start: 20240529, end: 20240529
  7. AMBROXOL [Concomitant]
     Active Substance: AMBROXOL
     Indication: Product used for unknown indication
  8. EDOXABAN TOSYLATE [Concomitant]
     Active Substance: EDOXABAN TOSYLATE
     Indication: Product used for unknown indication
  9. MIYA-BM [Concomitant]
     Active Substance: CLOSTRIDIUM BUTYRICUM SPORES STRAIN M-55
     Indication: Product used for unknown indication
  10. ROSUVASTATIN [Concomitant]
     Active Substance: ROSUVASTATIN
     Indication: Product used for unknown indication
  11. BISOPROLOL FUMARATE [Concomitant]
     Active Substance: BISOPROLOL FUMARATE
     Indication: Product used for unknown indication
  12. ESOMEPRAZOLE [Concomitant]
     Active Substance: ESOMEPRAZOLE
     Indication: Product used for unknown indication
  13. CIFENLINE [Concomitant]
     Active Substance: CIFENLINE
     Indication: Product used for unknown indication
  14. FILGRASTIM [Concomitant]
     Active Substance: FILGRASTIM
     Indication: Product used for unknown indication

REACTIONS (10)
  - Myelodysplastic syndrome [Fatal]
  - Neutropenia [Not Recovered/Not Resolved]
  - Febrile neutropenia [Not Recovered/Not Resolved]
  - Malignant neoplasm progression [Fatal]
  - Anaemia [Unknown]
  - Platelet count decreased [Unknown]
  - Respiratory failure [Unknown]
  - Off label use [Unknown]
  - Pyrexia [Unknown]
  - Acute respiratory distress syndrome [Unknown]

NARRATIVE: CASE EVENT DATE: 20240716
